FAERS Safety Report 7366923-9 (Version None)
Quarter: 2011Q1

REPORT INFORMATION
  Report Type: 
  Country: None (occurrence: None)
  Receive Date: 20110322
  Receipt Date: 20110314
  Transmission Date: 20110831
  Serious: Yes (Hospitalization)
  Sender: FDA-Public Use
  Company Number: B0705710A

PATIENT
  Sex: Female

DRUGS (9)
  1. NEXIUM [Suspect]
     Route: 048
     Dates: start: 20101220, end: 20110124
  2. RAMIPRIL [Concomitant]
     Route: 065
  3. CORTANCYL [Concomitant]
     Dosage: 60MG PER DAY
     Route: 048
     Dates: start: 20101220, end: 20101225
  4. LASIX [Concomitant]
     Route: 065
  5. ZELITREX [Suspect]
     Dosage: 500MG TWICE PER DAY
     Route: 048
     Dates: start: 20101220, end: 20110124
  6. CHLORAMINOPHENE [Concomitant]
     Dosage: 12MG PER DAY
     Route: 048
     Dates: start: 20101220, end: 20101225
  7. CORDARONE [Concomitant]
     Route: 065
  8. ALLOPURINOL [Suspect]
     Dosage: 300MG PER DAY
     Route: 048
     Dates: start: 20101220, end: 20110124
  9. BACTRIM [Suspect]
     Route: 048
     Dates: start: 20101220, end: 20110124

REACTIONS (6)
  - EOSINOPHILIA [None]
  - DERMATITIS EXFOLIATIVE [None]
  - LYMPHADENOPATHY [None]
  - PYREXIA [None]
  - RENAL IMPAIRMENT [None]
  - DRUG RASH WITH EOSINOPHILIA AND SYSTEMIC SYMPTOMS [None]
